FAERS Safety Report 6979404-9 (Version None)
Quarter: 2010Q3

REPORT INFORMATION
  Report Type: 
  Country: None (occurrence: None)
  Receive Date: 20100910
  Receipt Date: 20100910
  Transmission Date: 20110219
  Serious: No
  Sender: FDA-Public Use
  Company Number: None

PATIENT
  Age: 54 Year
  Sex: Female
  Weight: 93.8946 kg

DRUGS (1)
  1. MIDODRINE HYDROCHLORIDE [Suspect]
     Indication: BLOOD PRESSURE INCREASED
     Dosage: 1 1/2 2X'S DAY
     Dates: start: 20100719, end: 20100822

REACTIONS (5)
  - CARDIAC DISORDER [None]
  - CHEST PAIN [None]
  - ELECTROCARDIOGRAM ABNORMAL [None]
  - FORMICATION [None]
  - HEADACHE [None]
